FAERS Safety Report 21104921 (Version 1)
Quarter: 2022Q3

REPORT INFORMATION
  Report Type: Spontaneous
  Country: US (occurrence: None)
  Receive Date: 20220719
  Receipt Date: 20220719
  Transmission Date: 20221027
  Serious: Yes (Death, Hospitalization)
  Sender: FDA-Public Use
  Company Number: None

PATIENT
  Age: 69 Year
  Sex: Female
  Weight: 49.2 kg

DRUGS (1)
  1. XPOVIO [Suspect]
     Active Substance: SELINEXOR
     Indication: Plasma cell myeloma
     Dosage: OTHER FREQUENCY : TWICE WEEKLY;?
     Route: 048
     Dates: start: 20220302, end: 20220329

REACTIONS (2)
  - Hyponatraemia [None]
  - Cardiac arrest [None]

NARRATIVE: CASE EVENT DATE: 20220309
